FAERS Safety Report 8186880-5 (Version None)
Quarter: 2012Q1

REPORT INFORMATION
  Report Type: 
  Country: None (occurrence: None)
  Receive Date: 20120301
  Receipt Date: 20120215
  Transmission Date: 20120608
  Serious: Yes (Death)
  Sender: FDA-Public Use
  Company Number: 2012SP008529

PATIENT
  Age: 37 Year
  Sex: Male

DRUGS (8)
  1. INTRON A [Suspect]
     Indication: MALIGNANT MELANOMA
     Dosage: IV; IV; IV
     Route: 042
     Dates: start: 20120101, end: 20120101
  2. INTRON A [Suspect]
     Indication: MALIGNANT MELANOMA
     Dosage: IV; IV; IV
     Route: 042
     Dates: start: 20120101, end: 20120101
  3. INTRON A [Suspect]
     Indication: MALIGNANT MELANOMA
     Dosage: IV; IV; IV
     Route: 042
     Dates: start: 20120101, end: 20120101
  4. INTRON A [Suspect]
     Indication: MALIGNANT MELANOMA
     Dosage: IV; IV; IV
     Route: 042
     Dates: start: 20120101, end: 20120101
  5. INTRON A [Suspect]
     Indication: MALIGNANT MELANOMA
     Dosage: IV; IV; IV
     Route: 042
     Dates: start: 20120101, end: 20120101
  6. INTRON A [Suspect]
     Indication: MALIGNANT MELANOMA
     Dosage: IV; IV; IV
     Route: 042
     Dates: start: 20120101, end: 20120101
  7. INTRON A [Suspect]
     Indication: MALIGNANT MELANOMA
     Dosage: IV; IV; IV
     Route: 042
     Dates: start: 20120101, end: 20120101
  8. INTRON A [Suspect]
     Indication: MALIGNANT MELANOMA
     Dosage: IV
     Route: 042

REACTIONS (5)
  - GASTROINTESTINAL HAEMORRHAGE [None]
  - TRANSAMINASES ABNORMAL [None]
  - PLATELET COUNT DECREASED [None]
  - ABDOMINAL PAIN UPPER [None]
  - HAEMATEMESIS [None]
